FAERS Safety Report 15993557 (Version 1)
Quarter: 2019Q1

REPORT INFORMATION
  Report Type: Spontaneous
  Country: US (occurrence: US)
  Receive Date: 20190222
  Receipt Date: 20190222
  Transmission Date: 20190418
  Serious: No
  Sender: FDA-Public Use
  Company Number: US-CELGENEUS-USA-20190202955

PATIENT
  Age: 65 Year
  Sex: Female

DRUGS (1)
  1. OTEZLA [Suspect]
     Active Substance: APREMILAST
     Indication: PSORIASIS
     Dosage: 60 MILLIGRAM
     Route: 048
     Dates: start: 201901

REACTIONS (6)
  - Retching [Unknown]
  - Migraine [Unknown]
  - Nausea [Unknown]
  - Frequent bowel movements [Unknown]
  - Expired product administered [Unknown]
  - Vomiting [Unknown]

NARRATIVE: CASE EVENT DATE: 201901
